FAERS Safety Report 25289002 (Version 1)
Quarter: 2025Q2

REPORT INFORMATION
  Report Type: Spontaneous
  Country: US (occurrence: US)
  Receive Date: 20250509
  Receipt Date: 20250509
  Transmission Date: 20250716
  Serious: No
  Sender: BAYER HEALTHCARE PHARMACEUTICALS INC.
  Company Number: US-BAYER-2025A062433

PATIENT
  Age: 38 Year
  Sex: Female

DRUGS (5)
  1. MOXIFLOXACIN [Suspect]
     Active Substance: MOXIFLOXACIN
     Indication: Tuberculosis
     Route: 048
  2. ISONIAZID [Concomitant]
     Active Substance: ISONIAZID
  3. PYRAZINAMIDE [Concomitant]
     Active Substance: PYRAZINAMIDE
  4. LINEZOLID [Concomitant]
     Active Substance: LINEZOLID
  5. AMOXICILLIN\CLAVULANIC ACID [Concomitant]
     Active Substance: AMOXICILLIN\CLAVULANIC ACID

REACTIONS (2)
  - Product use in unapproved indication [None]
  - Product prescribing issue [None]
